FAERS Safety Report 8312627-5 (Version None)
Quarter: 2012Q2

REPORT INFORMATION
  Report Type: 
  Country: None (occurrence: None)
  Receive Date: 20120424
  Receipt Date: 20120416
  Transmission Date: 20120825
  Serious: Yes (Hospitalization)
  Sender: FDA-Public Use
  Company Number: DSA_54896_2012

PATIENT
  Sex: Female

DRUGS (2)
  1. DILANTIN [Concomitant]
  2. XENAZINE [Suspect]
     Indication: HUNTINGTON'S DISEASE
     Dosage: (25 MG TID ORAL)
     Route: 048
     Dates: start: 20120125

REACTIONS (4)
  - CHOREA [None]
  - URINARY TRACT INFECTION [None]
  - PNEUMONIA [None]
  - DRUG LEVEL INCREASED [None]
